FAERS Safety Report 5950914-6 (Version None)
Quarter: 2008Q4

REPORT INFORMATION
  Report Type: 
  Country: None (occurrence: None)
  Receive Date: 20081110
  Receipt Date: 20081030
  Transmission Date: 20090506
  Serious: Yes (Hospitalization)
  Sender: FDA-Public Use
  Company Number: JPI-P-005099

PATIENT
  Age: 79 Year
  Sex: Male

DRUGS (7)
  1. XYREM [Suspect]
     Indication: NARCOLEPSY
     Dosage: ORAL
     Route: 048
     Dates: start: 20080906, end: 20081001
  2. DIVALPROEX SODIUM [Concomitant]
  3. RISPERIDONE(RISEPERIDONE) [Concomitant]
  4. CLOPIDOGREL BISULFATE [Concomitant]
  5. CARVEDILOL [Concomitant]
  6. AMLODIPINE [Concomitant]
  7. INSULIN(INSULIN) [Concomitant]

REACTIONS (11)
  - ABNORMAL BEHAVIOUR [None]
  - AGGRESSION [None]
  - BELLIGERENCE [None]
  - CARDIAC FAILURE CONGESTIVE [None]
  - CONFUSIONAL STATE [None]
  - CRYING [None]
  - HOSTILITY [None]
  - IMPAIRED SELF-CARE [None]
  - INCOHERENT [None]
  - PSYCHOTIC DISORDER [None]
  - SUICIDAL IDEATION [None]
